FAERS Safety Report 20787966 (Version 8)
Quarter: 2022Q4

REPORT INFORMATION
  Report Type: Report from Study
  Country: US (occurrence: US)
  Receive Date: 20220505
  Receipt Date: 20221008
  Transmission Date: 20230113
  Serious: Yes (Other)
  Sender: FDA-Public Use
  Company Number: US-NOVARTISPH-NVSC2022US102472

PATIENT
  Sex: Female

DRUGS (2)
  1. ENTRESTO [Suspect]
     Active Substance: SACUBITRIL\VALSARTAN
     Indication: Product used for unknown indication
     Dosage: 1 DOSAGE FORM (24/26 MG), BID
     Route: 048
     Dates: start: 202204
  2. JARDIANCE [Suspect]
     Active Substance: EMPAGLIFLOZIN
     Indication: Product used for unknown indication
     Dosage: UNK
     Route: 065

REACTIONS (13)
  - Sarcoidosis [Unknown]
  - Syncope [Unknown]
  - Atrioventricular block [Unknown]
  - Weight decreased [Unknown]
  - Weight fluctuation [Unknown]
  - Chest pain [Unknown]
  - Dehydration [Unknown]
  - Spinal column injury [Unknown]
  - Illness [Unknown]
  - Fall [Unknown]
  - Nausea [Unknown]
  - Dizziness [Unknown]
  - Product dose omission in error [Unknown]
